FAERS Safety Report 10344221 (Version 1)
Quarter: 2014Q3

REPORT INFORMATION
  Report Type: Spontaneous
  Country: US (occurrence: None)
  Receive Date: 20140725
  Receipt Date: 20140725
  Transmission Date: 20150326
  Serious: Yes (Hospitalization, Disabling)
  Sender: FDA-Public Use
  Company Number: None

PATIENT
  Age: 60 Year
  Sex: Female
  Weight: 57.3 kg

DRUGS (4)
  1. PROMETHAZINE [Suspect]
     Active Substance: PROMETHAZINE\PROMETHAZINE HYDROCHLORIDE
     Dates: start: 20131113, end: 20131113
  2. GRAPE SEED EXTRACT [Concomitant]
     Active Substance: GRAPE SEED EXTRACT
  3. METHOTREXATE [Concomitant]
     Active Substance: METHOTREXATE
  4. PLAQUINIL [Concomitant]

REACTIONS (8)
  - Ischaemia [None]
  - Arterial spasm [None]
  - Arterial thrombosis [None]
  - Pain [None]
  - Sleep disorder [None]
  - Arterial occlusive disease [None]
  - Skin necrosis [None]
  - Pain in extremity [None]

NARRATIVE: CASE EVENT DATE: 20131113
